FAERS Safety Report 19583421 (Version 1)
Quarter: 2021Q3

REPORT INFORMATION
  Report Type: Spontaneous
  Country: US (occurrence: US)
  Receive Date: 20210720
  Receipt Date: 20210720
  Transmission Date: 20211014
  Serious: No
  Sender: FDA-Public Use
  Company Number: None

PATIENT
  Age: 65 Year
  Sex: Male

DRUGS (1)
  1. SOFOSBUVIR/VELPATASVIR /VOXILAPREVIR (SOFOSBUVIR 400MG/VELPATASVIR 100 [Suspect]
     Active Substance: SOFOSBUVIR\VELPATASVIR\VOXILAPREVIR
     Indication: HEPATITIS C
     Dosage: ?          OTHER DOSE:100MG/100MG/400MG;?
     Route: 048
     Dates: start: 20190423, end: 20190716

REACTIONS (1)
  - Headache [None]

NARRATIVE: CASE EVENT DATE: 20190506
